FAERS Safety Report 12178271 (Version 1)
Quarter: 2016Q1

REPORT INFORMATION
  Report Type: Spontaneous
  Country: US (occurrence: US)
  Receive Date: 20160314
  Receipt Date: 20160314
  Transmission Date: 20160526
  Serious: No
  Sender: FDA-Public Use
  Company Number: US-SA-2015SA209420

PATIENT
  Age: 57 Year
  Sex: Female

DRUGS (4)
  1. LANTUS SOLOSTAR [Concomitant]
     Active Substance: INSULIN GLARGINE
     Dates: start: 201508
  2. TOUJEO [Suspect]
     Active Substance: INSULIN GLARGINE
     Indication: TYPE 1 DIABETES MELLITUS
     Dosage: 40-42 UNITS
     Route: 065
     Dates: start: 201508
  3. SOLOSTAR [Concomitant]
     Active Substance: DEVICE
     Dates: start: 201508
  4. SOLOSTAR [Concomitant]
     Active Substance: DEVICE
     Dates: start: 201508

REACTIONS (2)
  - Injection site pruritus [Not Recovered/Not Resolved]
  - Injection site rash [Not Recovered/Not Resolved]

NARRATIVE: CASE EVENT DATE: 201508
